FAERS Safety Report 5931867-3 (Version None)
Quarter: 2008Q4

REPORT INFORMATION
  Report Type: 
  Country: None (occurrence: None)
  Receive Date: 20081027
  Receipt Date: 20081016
  Transmission Date: 20090506
  Serious: Yes (Hospitalization)
  Sender: FDA-Public Use
  Company Number: NO-ASTRAZENECA-2008SE04859

PATIENT
  Age: 17248 Day
  Sex: Male

DRUGS (4)
  1. SEROQUEL [Suspect]
     Indication: BIPOLAR DISORDER
     Route: 048
     Dates: end: 20080909
  2. HALDOL [Interacting]
     Indication: PSYCHOTIC DISORDER
     Route: 030
     Dates: start: 20080911, end: 20080911
  3. LEVOMEPROMAZINE [Interacting]
     Route: 048
     Dates: start: 20080911, end: 20080912
  4. HALDOL [Interacting]
     Indication: PSYCHOTIC DISORDER
     Route: 048
     Dates: start: 20080912, end: 20080912

REACTIONS (14)
  - ASPARTATE AMINOTRANSFERASE INCREASED [None]
  - BLOOD CREATINE PHOSPHOKINASE INCREASED [None]
  - BLOOD CREATININE INCREASED [None]
  - BLOOD MAGNESIUM INCREASED [None]
  - BLOOD PRESSURE INCREASED [None]
  - BLOOD SODIUM INCREASED [None]
  - BODY TEMPERATURE INCREASED [None]
  - C-REACTIVE PROTEIN INCREASED [None]
  - DEPRESSED LEVEL OF CONSCIOUSNESS [None]
  - DRUG INTERACTION [None]
  - MUSCLE RIGIDITY [None]
  - NEUROLEPTIC MALIGNANT SYNDROME [None]
  - TACHYCARDIA [None]
  - URINARY INCONTINENCE [None]
